FAERS Safety Report 6742812-5 (Version None)
Quarter: 2010Q2

REPORT INFORMATION
  Report Type: 
  Country: None (occurrence: None)
  Receive Date: 20100525
  Receipt Date: 20100312
  Transmission Date: 20101027
  Serious: Yes (Death)
  Sender: FDA-Public Use
  Company Number: IPC201003-000108

PATIENT
  Age: 67 Year
  Sex: Male

DRUGS (6)
  1. METFORMIN HYDROCHLORIDE        (METFORMIN HYDROCHLORIDE) (METFORMIN HY [Suspect]
     Dosage: ORAL
     Route: 048
  2. PROCHLORPERAZINE [Suspect]
     Dosage: ORAL
     Route: 048
  3. DIPHENHYDRAMINE HYDROCHLORIDE [Suspect]
     Dosage: ORAL
     Route: 048
  4. GLYBURIDE [Suspect]
     Dosage: ORAL
     Route: 048
  5. SSRI [Suspect]
     Dosage: ORAL
     Route: 048
  6. BENZODIAZEPINE [Suspect]
     Dosage: ORAL
     Route: 048

REACTIONS (1)
  - COMPLETED SUICIDE [None]
